FAERS Safety Report 4887823-X (Version None)
Quarter: 2006Q1

REPORT INFORMATION
  Report Type: 
  Country: None (occurrence: None)
  Receive Date: 20060123
  Receipt Date: 20050125
  Transmission Date: 20060701
  Serious: Yes (Hospitalization)
  Sender: FDA-Public Use
  Company Number: US-MERCK-0501USA04120

PATIENT
  Age: 52 Year
  Sex: Male
  Weight: 95 kg

DRUGS (2)
  1. VIOXX [Suspect]
     Route: 048
     Dates: end: 20041014
  2. VIOXX [Suspect]
     Route: 048
     Dates: end: 20030311

REACTIONS (13)
  - AMBLYOPIA [None]
  - ANAEMIA [None]
  - CAROTID BRUIT [None]
  - CORONARY ARTERY DISEASE [None]
  - DEHYDRATION [None]
  - EMBOLIC STROKE [None]
  - GASTRITIS [None]
  - HAEMATURIA [None]
  - METABOLIC SYNDROME [None]
  - MYOCARDIAL INFARCTION [None]
  - PAIN [None]
  - RENAL CYST [None]
  - WEIGHT INCREASED [None]
